FAERS Safety Report 5061091-0 (Version None)
Quarter: 2006Q3

REPORT INFORMATION
  Report Type: 
  Country: None (occurrence: None)
  Receive Date: 20060725
  Receipt Date: 20060713
  Transmission Date: 20061208
  Serious: Yes (Other)
  Sender: FDA-Public Use
  Company Number: SE-BRISTOL-MYERS SQUIBB COMPANY-13448345

PATIENT
  Sex: Female

DRUGS (1)
  1. ENDOXAN [Suspect]

REACTIONS (1)
  - GRAND MAL CONVULSION [None]
